FAERS Safety Report 5201830-9 (Version None)
Quarter: 2007Q1

REPORT INFORMATION
  Report Type: 
  Country: None (occurrence: None)
  Receive Date: 20070104
  Receipt Date: 20061222
  Transmission Date: 20070707
  Serious: Yes (Life-Threatening, Hospitalization)
  Sender: FDA-Public Use
  Company Number: T200601449

PATIENT
  Age: 85 Year
  Sex: Female

DRUGS (8)
  1. OPTIRAY 160 [Suspect]
     Indication: COMPUTERISED TOMOGRAM ABDOMEN
     Dosage: 85 ML, SINGLE, INTRAVENOUS
     Route: 042
     Dates: start: 20061212, end: 20061212
  2. ORCIPRENALINE (ORCIPRENALINE) [Concomitant]
  3. AMLODIPIN (AMLODIPINE BESILATE) [Concomitant]
  4. NICERGLINE (NICERGOLINE) [Concomitant]
  5. ALFACALCIDOL (ALFACALCIDOL) [Concomitant]
  6. FAMOTIDINE [Concomitant]
  7. VALSARTAN [Concomitant]
  8. FUROSEMIDE [Concomitant]

REACTIONS (5)
  - DEPRESSED LEVEL OF CONSCIOUSNESS [None]
  - INCONTINENCE [None]
  - NAUSEA [None]
  - PULSE ABSENT [None]
  - SHOCK [None]
